FAERS Safety Report 21391890 (Version 1)
Quarter: 2022Q3

REPORT INFORMATION
  Report Type: Report from Study
  Country: DE (occurrence: DE)
  Receive Date: 20220929
  Receipt Date: 20220929
  Transmission Date: 20221027
  Serious: Yes (Hospitalization, Other)
  Sender: FDA-Public Use
  Company Number: DE-JNJFOC-20220942464

PATIENT
  Age: 6 Decade
  Sex: Male
  Weight: 77 kg

DRUGS (3)
  1. BORTEZOMIB [Suspect]
     Active Substance: BORTEZOMIB
     Indication: Plasma cell myeloma
     Dosage: 1.3 MILLIGRAM/SQ. METER
     Route: 042
     Dates: start: 20210226, end: 20210308
  2. BENDAMUSTINE [Suspect]
     Active Substance: BENDAMUSTINE
     Indication: Plasma cell myeloma
     Dosage: 60 MILLIGRAM/SQ. METER
     Route: 042
     Dates: start: 20210226, end: 20210227
  3. PREDNISOLONE [Suspect]
     Active Substance: PREDNISOLONE
     Indication: Plasma cell myeloma
     Dosage: 100 MILLIGRAM
     Route: 048
     Dates: start: 20210226, end: 20210308

REACTIONS (2)
  - Stridor [Recovered/Resolved with Sequelae]
  - Aspiration [Recovered/Resolved with Sequelae]

NARRATIVE: CASE EVENT DATE: 20210310
